FAERS Safety Report 24048301 (Version 2)
Quarter: 2024Q3

REPORT INFORMATION
  Report Type: Spontaneous
  Country: AU (occurrence: AU)
  Receive Date: 20240704
  Receipt Date: 20240712
  Transmission Date: 20241016
  Serious: Yes (Life-Threatening, Hospitalization)
  Sender: STRIDES
  Company Number: None

PATIENT
  Age: 87 Year
  Sex: Male

DRUGS (6)
  1. PREDNISOLONE [Suspect]
     Active Substance: PREDNISOLONE
     Indication: Gastrointestinal carcinoma
     Dosage: UNK (TAPERING COURSE OF PREDNISOLONE THAT CONCLUDED PRIOR TO PRESENTATION)
     Route: 065
     Dates: start: 2023
  2. PREDNISOLONE [Suspect]
     Active Substance: PREDNISOLONE
     Indication: BRAF gene mutation
     Dosage: 1 MILLIGRAM/KILOGRAM
     Route: 048
  3. PREDNISOLONE [Suspect]
     Active Substance: PREDNISOLONE
     Indication: Colitis
  4. PREDNISOLONE [Suspect]
     Active Substance: PREDNISOLONE
     Indication: Evidence based treatment
  5. PEMBROLIZUMAB [Suspect]
     Active Substance: PEMBROLIZUMAB
     Indication: Gastrointestinal carcinoma
     Dosage: UNK
     Route: 065
     Dates: start: 2021, end: 202308
  6. PEMBROLIZUMAB [Suspect]
     Active Substance: PEMBROLIZUMAB
     Indication: BRAF gene mutation

REACTIONS (2)
  - Pneumomediastinum [Recovered/Resolved]
  - Pneumonia [Unknown]
